FAERS Safety Report 9669844 (Version 4)
Quarter: 2014Q2

REPORT INFORMATION
  Report Type: Report from Study
  Country: ES (occurrence: ES)
  Receive Date: 20131105
  Receipt Date: 20140506
  Transmission Date: 20141212
  Serious: Yes (Hospitalization)
  Sender: FDA-Public Use
  Company Number: ES-BAYER-2013-059918

PATIENT
  Age: 75 Year
  Sex: Male
  Weight: 94 kg

DRUGS (10)
  1. ALPHARADIN [Suspect]
     Indication: PROSTATE CANCER METASTATIC
     Dosage: UNK
     Route: 042
     Dates: start: 20130226, end: 20130226
  2. ALPHARADIN [Suspect]
     Indication: PROSTATE CANCER METASTATIC
     Dosage: UNK
     Route: 042
     Dates: start: 20130326, end: 20130326
  3. ALPHARADIN [Suspect]
     Indication: PROSTATE CANCER METASTATIC
     Dosage: UNK
     Route: 042
     Dates: start: 20130423, end: 20130423
  4. CLEXANE [Concomitant]
     Indication: DEEP VEIN THROMBOSIS
     Dosage: TOTAL DAILY DOSE 120 MG
     Route: 058
     Dates: start: 20090901
  5. PRIMPERAN [Concomitant]
     Indication: NAUSEA
     Dosage: 10 MG, PRN
     Route: 048
     Dates: start: 20130226
  6. TRIPTORELIN [Concomitant]
     Indication: PROSTATE CANCER METASTATIC
     Dosage: 11.25 MG, Q3MON
     Route: 030
     Dates: start: 20130205
  7. SYMBICORT [Concomitant]
     Indication: CHRONIC OBSTRUCTIVE PULMONARY DISEASE
     Dosage: 320/9 MCG/12H
     Route: 055
  8. HYDREA [Concomitant]
     Indication: PROSTATE CANCER METASTATIC
     Dosage: UNK
     Dates: start: 20130509
  9. LORZAAR [Concomitant]
     Indication: HYPERTENSION
     Dosage: 12.5 MG, QD
     Route: 048
  10. ADIRO 100 [Concomitant]
     Indication: MYOCARDIAL INFARCTION
     Dosage: 100 MG, QD
     Route: 048
     Dates: start: 1990

REACTIONS (1)
  - Vomiting [Recovered/Resolved]
